FAERS Safety Report 10152856 (Version 2)
Quarter: 2014Q2

REPORT INFORMATION
  Report Type: Spontaneous
  Country: US (occurrence: US)
  Receive Date: 20140505
  Receipt Date: 20140505
  Transmission Date: 20141212
  Serious: No
  Sender: FDA-Public Use
  Company Number: US-ASTRAZENECA-2013SE69625

PATIENT
  Age: 22583 Day
  Sex: Male
  Weight: 90.7 kg

DRUGS (19)
  1. PRILOSEC OTC [Suspect]
     Indication: GASTROOESOPHAGEAL REFLUX DISEASE
     Route: 048
     Dates: start: 2005
  2. SEROQUEL XR [Suspect]
     Indication: BIPOLAR DISORDER
     Route: 048
     Dates: start: 201307, end: 201308
  3. SEROQUEL XR [Suspect]
     Indication: BIPOLAR II DISORDER
     Route: 048
     Dates: start: 201307, end: 201308
  4. SEROQUEL XR [Suspect]
     Indication: BIPOLAR DISORDER
     Route: 048
     Dates: start: 201308, end: 201308
  5. SEROQUEL XR [Suspect]
     Indication: BIPOLAR II DISORDER
     Route: 048
     Dates: start: 201308, end: 201308
  6. SEROQUEL XR [Suspect]
     Indication: BIPOLAR DISORDER
     Route: 048
     Dates: start: 201308, end: 20130913
  7. SEROQUEL XR [Suspect]
     Indication: BIPOLAR II DISORDER
     Route: 048
     Dates: start: 201308, end: 20130913
  8. GEODON [Suspect]
     Route: 065
  9. SELEGILINE [Concomitant]
     Indication: DEPRESSION
     Route: 061
     Dates: start: 201308
  10. LAMOTRIGINE [Concomitant]
     Indication: MANIA
     Route: 048
     Dates: start: 2010
  11. CLONAZAPAM [Concomitant]
     Indication: ANXIETY
     Route: 048
     Dates: start: 2008
  12. REMOREN [Concomitant]
  13. EFFEXOR [Concomitant]
  14. DEPAKOTE [Concomitant]
  15. LITHIUM [Concomitant]
  16. COGENTIN [Concomitant]
  17. EMSAM [Concomitant]
  18. OLANZIPINE [Concomitant]
  19. ECT [Concomitant]

REACTIONS (7)
  - Clumsiness [Recovered/Resolved]
  - Fall [Recovered/Resolved]
  - Coordination abnormal [Recovered/Resolved]
  - Gait disturbance [Recovered/Resolved]
  - Balance disorder [Recovered/Resolved]
  - Hyperhidrosis [Recovered/Resolved]
  - Muscular weakness [Recovered/Resolved]
